FAERS Safety Report 24228754 (Version 1)
Quarter: 2024Q3

REPORT INFORMATION
  Report Type: Spontaneous
  Country: US (occurrence: None)
  Receive Date: 20240819
  Receipt Date: 20240819
  Transmission Date: 20241016
  Serious: Yes (Other)
  Sender: Public
  Company Number: None

PATIENT
  Age: 54 Year
  Sex: Male
  Weight: 148.05 kg

DRUGS (1)
  1. LUMASON [Suspect]
     Active Substance: SULFUR HEXAFLUORIDE
     Indication: Ischaemic cardiomyopathy
     Dosage: 2 ML INTRAVENOUS
     Route: 042

REACTIONS (5)
  - Vomiting [None]
  - Hyperhidrosis [None]
  - Flushing [None]
  - Urticaria [None]
  - Loss of consciousness [None]

NARRATIVE: CASE EVENT DATE: 20240819
